FAERS Safety Report 21576357 (Version 1)
Quarter: 2022Q4

REPORT INFORMATION
  Report Type: Spontaneous
  Country: US (occurrence: US)
  Receive Date: 20221110
  Receipt Date: 20221110
  Transmission Date: 20230112
  Serious: No
  Sender: FDA-Public Use
  Company Number: US-JNJFOC-20221103624

PATIENT
  Sex: Female

DRUGS (1)
  1. CONCERTA [Suspect]
     Active Substance: METHYLPHENIDATE HYDROCHLORIDE
     Indication: Attention deficit hyperactivity disorder
     Dosage: 36 MG AND 54 MG TOOK TOGETHER
     Route: 065

REACTIONS (4)
  - Product dose omission issue [Unknown]
  - Impaired work ability [Unknown]
  - Off label use [Unknown]
  - Skin burning sensation [Unknown]
